FAERS Safety Report 6494072-0 (Version None)
Quarter: 2009Q4

REPORT INFORMATION
  Report Type: 
  Country: None (occurrence: None)
  Receive Date: 20091214
  Receipt Date: 20081218
  Transmission Date: 20100525
  Serious: No
  Sender: FDA-Public Use
  Company Number: US-BRISTOL-MYERS SQUIBB COMPANY-14448906

PATIENT
  Age: 47 Year
  Sex: Male
  Weight: 59 kg

DRUGS (2)
  1. ABILIFY [Suspect]
     Indication: MOOD SWINGS
     Dosage: 1 DOSAGE FORM = HALF TABLET
     Dates: start: 20081126
  2. WELLBUTRIN [Concomitant]

REACTIONS (4)
  - FATIGUE [None]
  - HYPERPHAGIA [None]
  - INSOMNIA [None]
  - WEIGHT INCREASED [None]
